FAERS Safety Report 11485994 (Version 2)
Quarter: 2015Q3

REPORT INFORMATION
  Report Type: Spontaneous
  Country: CR (occurrence: CR)
  Receive Date: 20150909
  Receipt Date: 20150922
  Transmission Date: 20151125
  Serious: Yes (Hospitalization)
  Sender: FDA-Public Use
  Company Number: CR-PFIZER INC-2015278843

PATIENT
  Age: 40 Year
  Sex: Female

DRUGS (1)
  1. SAYANA [Suspect]
     Active Substance: MEDROXYPROGESTERONE
     Indication: CONTRACEPTION
     Dosage: UNK, EVERY 3 MONTHS
     Dates: start: 20150818

REACTIONS (5)
  - Injection site erythema [Recovered/Resolved]
  - Migraine [Unknown]
  - Injection site discolouration [Recovered/Resolved]
  - Menorrhagia [Not Recovered/Not Resolved]
  - Condition aggravated [Unknown]

NARRATIVE: CASE EVENT DATE: 20150818
